APPROVED DRUG PRODUCT: TAGAMET HB
Active Ingredient: CIMETIDINE
Strength: 100MG **Federal Register determination that product was not discontinued or withdrawn for safety or effectiveness reasons**
Dosage Form/Route: TABLET;ORAL
Application: N020238 | Product #001
Applicant: MEDTECH PRODUCTS INC
Approved: Jun 19, 1995 | RLD: Yes | RS: No | Type: DISCN